FAERS Safety Report 24711299 (Version 1)
Quarter: 2024Q4

REPORT INFORMATION
  Report Type: Spontaneous
  Country: US (occurrence: None)
  Receive Date: 20241207
  Receipt Date: 20241207
  Transmission Date: 20250115
  Serious: Yes (Hospitalization)
  Sender: Public
  Company Number: None

PATIENT
  Age: 68 Year
  Sex: Female
  Weight: 22.38 kg

DRUGS (7)
  1. CYCLOPHOSPHAMIDE [Suspect]
     Active Substance: CYCLOPHOSPHAMIDE
     Dates: end: 20241123
  2. CYTARABINE [Suspect]
     Active Substance: CYTARABINE
     Dates: end: 20241121
  3. SPRYCEL [Suspect]
     Active Substance: DASATINIB
     Dates: end: 20241201
  4. DEXAMETHASONE [Suspect]
     Active Substance: DEXAMETHASONE
     Dates: end: 20241201
  5. DOXORUBICIN HYDROCHLORIDE [Suspect]
     Active Substance: DOXORUBICIN HYDROCHLORIDE
     Dates: end: 20241123
  6. MESNA [Suspect]
     Active Substance: MESNA
     Dates: end: 20241122
  7. VINCRISTINE SULFATE [Suspect]
     Active Substance: VINCRISTINE SULFATE
     Dates: end: 20241130

REACTIONS (3)
  - Anaemia [None]
  - Red blood cell transfusion [None]
  - Pancytopenia [None]

NARRATIVE: CASE EVENT DATE: 20241202
